FAERS Safety Report 5272498-0 (Version None)
Quarter: 2007Q1

REPORT INFORMATION
  Report Type: 
  Country: None (occurrence: None)
  Receive Date: 20070322
  Receipt Date: 20060421
  Transmission Date: 20070707
  Serious: No
  Sender: FDA-Public Use
  Company Number: US-BRISTOL-MYERS SQUIBB COMPANY-13354170

PATIENT
  Age: 58 Year
  Sex: Male
  Weight: 73 kg

DRUGS (1)
  1. KENALOG [Suspect]
     Indication: ECZEMA
     Dates: start: 20060321, end: 20060321

REACTIONS (1)
  - NIGHT SWEATS [None]
